FAERS Safety Report 4909272-8 (Version None)
Quarter: 2006Q1

REPORT INFORMATION
  Report Type: 
  Country: None (occurrence: None)
  Receive Date: 20060208
  Receipt Date: 20060208
  Transmission Date: 20060701
  Serious: Yes (Hospitalization)
  Sender: FDA-Public Use
  Company Number: None

PATIENT
  Age: 60 Year
  Sex: Male
  Weight: 105.6881 kg

DRUGS (1)
  1. QUETIAPINE FUMARATE [Suspect]
     Indication: BIPOLAR DISORDER
     Dosage: 25 MG PO BID + 100 MG PO QHS
     Route: 048
     Dates: start: 20050401, end: 20050701

REACTIONS (8)
  - CHILLS [None]
  - DIABETES MELLITUS NON-INSULIN-DEPENDENT [None]
  - HEADACHE [None]
  - HYPERHIDROSIS [None]
  - LABORATORY TEST ABNORMAL [None]
  - LETHARGY [None]
  - POLYURIA [None]
  - TREATMENT NONCOMPLIANCE [None]
